FAERS Safety Report 21908059 (Version 2)
Quarter: 2023Q1

REPORT INFORMATION
  Report Type: Spontaneous
  Country: US (occurrence: US)
  Receive Date: 20230125
  Receipt Date: 20230316
  Transmission Date: 20230418
  Serious: Yes (Other)
  Sender: FDA-Public Use
  Company Number: US-PFIZER INC-2020488309

PATIENT
  Age: 82 Year
  Sex: Female
  Weight: 64.41 kg

DRUGS (1)
  1. PREMARIN [Suspect]
     Active Substance: ESTROGENS, CONJUGATED
     Dosage: 1 G (1 GRAM PER VAGINA 2-3 TIMES WEEKLY)
     Route: 067

REACTIONS (2)
  - Macular degeneration [Unknown]
  - Off label use [Unknown]
